FAERS Safety Report 10136560 (Version 1)
Quarter: 2014Q2

REPORT INFORMATION
  Report Type: Spontaneous
  Country: US (occurrence: None)
  Receive Date: 20140425
  Receipt Date: 20140425
  Transmission Date: 20141212
  Serious: No
  Sender: FDA-Public Use
  Company Number: None

PATIENT
  Age: 45 Year
  Sex: Female

DRUGS (3)
  1. WARFARIN [Suspect]
     Indication: MEDICATION ERROR
     Dosage: AT LEAST A MONTH OR TWO.
  2. ZYRTEC [Concomitant]
  3. WARFARIN [Concomitant]

REACTIONS (7)
  - Coagulopathy [None]
  - Haematuria [None]
  - Haemoptysis [None]
  - Drug dispensing error [None]
  - Wrong drug administered [None]
  - Circumstance or information capable of leading to medication error [None]
  - Product quality issue [None]
